FAERS Safety Report 6338573-4 (Version None)
Quarter: 2009Q3

REPORT INFORMATION
  Report Type: 
  Country: None (occurrence: None)
  Receive Date: 20090903
  Receipt Date: 20070518
  Transmission Date: 20100115
  Serious: Yes (Other)
  Sender: FDA-Public Use
  Company Number: US-ASTRAZENECA-2006UW21739

PATIENT
  Age: 18354 Day
  Sex: Female
  Weight: 74.4 kg

DRUGS (15)
  1. SEROQUEL [Suspect]
     Indication: BIPOLAR DISORDER
     Dosage: SAMPLES, 600 MG
     Route: 048
     Dates: start: 20030101
  2. SEROQUEL [Suspect]
     Indication: MOOD SWINGS
     Dosage: SAMPLES, 600 MG
     Route: 048
     Dates: start: 20030101
  3. SEROQUEL [Suspect]
     Dosage: 150MG-600MG
     Route: 048
     Dates: start: 20030927
  4. SEROQUEL [Suspect]
     Dosage: 150MG-600MG
     Route: 048
     Dates: start: 20030927
  5. PROZAC [Concomitant]
     Dosage: 10MG-20MG
     Route: 048
     Dates: start: 20030901
  6. TEGRETOL [Concomitant]
     Dosage: 200MG-600MG
     Route: 048
     Dates: start: 20030901
  7. CELEXA [Concomitant]
     Dosage: 20MG-60MG
     Route: 048
     Dates: start: 20030901
  8. HYDROXYZINE [Concomitant]
     Indication: ANXIETY
     Dosage: 25MG AS PER NECESSARY
     Route: 048
     Dates: start: 20030901
  9. REMERON [Concomitant]
     Indication: DEPRESSION
     Dosage: 15MG-30MG
     Route: 048
     Dates: start: 20050621
  10. REMERON [Concomitant]
     Indication: INSOMNIA
     Dosage: 15MG-30MG
     Route: 048
     Dates: start: 20050621
  11. LEVOXYL/ SYNTHROID [Concomitant]
     Route: 048
     Dates: start: 20040616
  12. HEMOCYTE [Concomitant]
     Route: 048
     Dates: start: 20050717
  13. PREMPRO [Concomitant]
     Dosage: 0.45MG AND 1.5MG
     Route: 048
     Dates: start: 20040923
  14. PREDNISONE [Concomitant]
     Route: 048
     Dates: start: 20070925
  15. HYDROCORTISONE [Concomitant]
     Route: 048
     Dates: start: 20070723

REACTIONS (3)
  - DIABETES MELLITUS [None]
  - NEUROPATHY PERIPHERAL [None]
  - TYPE 2 DIABETES MELLITUS [None]
